FAERS Safety Report 25298919 (Version 1)
Quarter: 2025Q2

REPORT INFORMATION
  Report Type: Report from Study
  Country: US (occurrence: US)
  Receive Date: 20250512
  Receipt Date: 20250512
  Transmission Date: 20250716
  Serious: Yes (Other)
  Sender: ABBVIE
  Company Number: US-ABBVIE-6272100

PATIENT
  Age: 28 Year
  Sex: Female

DRUGS (2)
  1. VENCLEXTA [Suspect]
     Active Substance: VENETOCLAX
     Indication: Acute myeloid leukaemia
     Dosage: DOSE - 100MG DAILY FOR DAYS 1-14 OF A 28 DAY CYCLE
     Route: 048
     Dates: start: 20250428
  2. COMPAZINE [Suspect]
     Active Substance: PROCHLORPERAZINE MALEATE
     Indication: Product used for unknown indication
     Route: 065

REACTIONS (10)
  - Febrile neutropenia [Unknown]
  - Nausea [Unknown]
  - Cough [Unknown]
  - Vomiting [Unknown]
  - Neutropenia [Unknown]
  - Pancytopenia [Unknown]
  - Panic attack [Recovered/Resolved]
  - Fatigue [Unknown]
  - Pneumonia [Unknown]
  - Panic attack [Unknown]

NARRATIVE: CASE EVENT DATE: 20250101
